FAERS Safety Report 19234207 (Version 1)
Quarter: 2021Q2

REPORT INFORMATION
  Report Type: Spontaneous
  Country: US (occurrence: US)
  Receive Date: 20210508
  Receipt Date: 20210508
  Transmission Date: 20210717
  Serious: No
  Sender: FDA-Public Use
  Company Number: US-SA-2021SA137228

PATIENT
  Age: 54 Year
  Sex: Female

DRUGS (2)
  1. CAPRELSA [Suspect]
     Active Substance: VANDETANIB
     Dosage: 200MG
  2. CAPRELSA [Suspect]
     Active Substance: VANDETANIB
     Indication: THYROID CANCER
     Dosage: UNK UNK, QD
     Route: 048
     Dates: start: 20201109

REACTIONS (1)
  - Gastrointestinal disorder [Unknown]
